FAERS Safety Report 21972818 (Version 3)
Quarter: 2023Q1

REPORT INFORMATION
  Report Type: Spontaneous
  Country: CO (occurrence: CO)
  Receive Date: 20230209
  Receipt Date: 20230328
  Transmission Date: 20230418
  Serious: No
  Sender: FDA-Public Use
  Company Number: CO-PFIZER INC-PV202300022869

PATIENT
  Age: 8 Year
  Sex: Male

DRUGS (1)
  1. GENOTROPIN [Suspect]
     Active Substance: SOMATROPIN
     Indication: Growth disorder
     Dosage: 1 MG, DAILY
     Route: 058
     Dates: start: 20230131

REACTIONS (2)
  - Device information output issue [Recovered/Resolved]
  - Drug dose omission by device [Recovered/Resolved]

NARRATIVE: CASE EVENT DATE: 20230131
